FAERS Safety Report 4659158-1 (Version None)
Quarter: 2005Q2

REPORT INFORMATION
  Report Type: 
  Country: None (occurrence: None)
  Receive Date: 20050511
  Receipt Date: 20050225
  Transmission Date: 20051028
  Serious: Yes (Hospitalization)
  Sender: FDA-Public Use
  Company Number: FR-NOVOPROD-242547

PATIENT
  Age: 48 Year
  Sex: Female
  Weight: 45 kg

DRUGS (10)
  1. NORDITROPIN [Suspect]
     Indication: GROWTH HORMONE DEFICIENCY
     Dosage: .15 MG, QD
     Dates: start: 20020901
  2. HYDROCORTISON [Concomitant]
     Dosage: 15 MG, QD
     Route: 048
     Dates: start: 19971003
  3. EUTHYRAL [Concomitant]
     Indication: THYROID DISORDER
     Dosage: 15 MG, QD
     Route: 048
     Dates: start: 20040511
  4. OROCAL D(3) [Concomitant]
     Dosage: 20 TABL./MONTH
     Route: 048
     Dates: start: 19940117
  5. RIVOTRIL [Concomitant]
     Dosage: 10 DROPS
     Dates: start: 19980101
  6. LIPANTHYL ^BRISTOL-MYERS SQUIBB^ [Concomitant]
     Dosage: 1 TAB, QD
     Dates: start: 20040201
  7. NICARDIPINE HCL [Concomitant]
     Dosage: 20 MG, QD
     Dates: start: 20000901
  8. TARDYFERON                              /GFR/ [Concomitant]
     Dosage: 2 TAB, QD
     Dates: start: 20040901
  9. TEGRETOL [Concomitant]
     Dosage: 2 TAB, QD
     Dates: start: 20010601
  10. MIGPRIV [Concomitant]
     Indication: MIGRAINE

REACTIONS (3)
  - MIGRAINE WITHOUT AURA [None]
  - MUSCULOSKELETAL STIFFNESS [None]
  - MYALGIA [None]
